FAERS Safety Report 5140517-8 (Version None)
Quarter: 2006Q4

REPORT INFORMATION
  Report Type: 
  Country: None (occurrence: None)
  Receive Date: 20061031
  Receipt Date: 20061026
  Transmission Date: 20070319
  Serious: Yes (Other)
  Sender: FDA-Public Use
  Company Number: FR-BRISTOL-MYERS SQUIBB COMPANY-13557798

PATIENT
  Age: 60 Year
  Sex: Male

DRUGS (5)
  1. PRAVASTATIN [Suspect]
     Route: 048
     Dates: start: 20051115
  2. COAPROVEL [Suspect]
     Dates: start: 20051115
  3. METFORMIN HCL [Suspect]
     Dates: start: 20051115
  4. GLIMEPIRIDE [Suspect]
     Dates: end: 20060515
  5. VIRAFERONPEG [Suspect]
     Dates: start: 20050901, end: 20060627

REACTIONS (1)
  - BONE MARROW FAILURE [None]
